FAERS Safety Report 16717550 (Version 2)
Quarter: 2019Q4

REPORT INFORMATION
  Report Type: Spontaneous
  Country: FR (occurrence: FR)
  Receive Date: 20190819
  Receipt Date: 20191022
  Transmission Date: 20200122
  Serious: No
  Sender: FDA-Public Use
  Company Number: FR-BEH-2019105415

PATIENT

DRUGS (2)
  1. AFSTYLA ANTIHEMOPHILIC FACTOR (RECOMBINANT), SINGLE CHAIN [Suspect]
     Active Substance: ANTIHEMOPHILIC FACTOR, HUMAN RECOMBINANT
     Route: 065
  2. AFSTYLA ANTIHEMOPHILIC FACTOR (RECOMBINANT), SINGLE CHAIN [Suspect]
     Active Substance: ANTIHEMOPHILIC FACTOR, HUMAN RECOMBINANT
     Route: 065

REACTIONS (3)
  - Headache [Recovered/Resolved]
  - Dizziness [Recovered/Resolved]
  - Hyperhidrosis [Recovered/Resolved]
